FAERS Safety Report 6908482-8 (Version None)
Quarter: 2010Q3

REPORT INFORMATION
  Report Type: 
  Country: None (occurrence: None)
  Receive Date: 20100805
  Receipt Date: 20100723
  Transmission Date: 20110219
  Serious: Yes (Other)
  Sender: FDA-Public Use
  Company Number: US-PFIZER INC-2010093496

PATIENT
  Sex: Male
  Weight: 72.562 kg

DRUGS (1)
  1. CHANTIX [Suspect]
     Indication: SMOKING CESSATION THERAPY
     Dosage: 1 MG, 2X/DAY
     Route: 048
     Dates: start: 20100709

REACTIONS (6)
  - EYE DISCHARGE [None]
  - EYE SWELLING [None]
  - FEELING ABNORMAL [None]
  - HEADACHE [None]
  - SWELLING FACE [None]
  - VISUAL IMPAIRMENT [None]
